FAERS Safety Report 4435309-9 (Version None)
Quarter: 2004Q3

REPORT INFORMATION
  Report Type: 
  Country: None (occurrence: None)
  Receive Date: 20040827
  Receipt Date: 20040827
  Transmission Date: 20050211
  Serious: Yes (Other)
  Sender: FDA-Public Use
  Company Number: None

PATIENT
  Age: 58 Year
  Sex: Female
  Weight: 65.7716 kg

DRUGS (1)
  1. ELMIRON [Suspect]
     Indication: CYSTITIS
     Dosage: 2 ORAL
     Route: 048
     Dates: start: 20000901, end: 20040826

REACTIONS (1)
  - VISUAL DISTURBANCE [None]
